FAERS Safety Report 14779379 (Version 1)
Quarter: 2018Q2

REPORT INFORMATION
  Report Type: Spontaneous
  Country: IR (occurrence: IR)
  Receive Date: 20180419
  Receipt Date: 20180419
  Transmission Date: 20180711
  Serious: Yes (Other)
  Sender: FDA-Public Use
  Company Number: IR-SCIEGEN PHARMACEUTICALS INC-2018SCILIT00221

PATIENT
  Age: 42 Year
  Sex: Female

DRUGS (1)
  1. GABAPENTIN CAPSULES [Suspect]
     Active Substance: GABAPENTIN
     Indication: INSOMNIA
     Dosage: 100 MG ONCE A DAY
     Route: 065

REACTIONS (2)
  - Product use in unapproved indication [None]
  - Substance-induced psychotic disorder [Recovered/Resolved]
